FAERS Safety Report 15986123 (Version 1)
Quarter: 2019Q1

REPORT INFORMATION
  Report Type: Spontaneous
  Country: JP (occurrence: JP)
  Receive Date: 20190220
  Receipt Date: 20190220
  Transmission Date: 20190418
  Serious: Yes (Hospitalization)
  Sender: FDA-Public Use
  Company Number: JP-PFIZER INC-2018521273

PATIENT
  Age: 80 Year
  Sex: Female
  Weight: 32 kg

DRUGS (9)
  1. TETRAMIDE [Suspect]
     Active Substance: MIANSERIN
     Dosage: 20 MG, 1X/DAY
     Route: 048
     Dates: start: 20181127, end: 20181205
  2. TETRAMIDE [Suspect]
     Active Substance: MIANSERIN
     Dosage: 10 MG, 1X/DAY
     Route: 048
     Dates: start: 20181206, end: 20181212
  3. OLOPATADINE. [Concomitant]
     Active Substance: OLOPATADINE
     Indication: HYPERTENSION
     Dosage: 10 MG, 1X/DAY
     Route: 048
     Dates: end: 20181212
  4. BELSOMRA [Concomitant]
     Active Substance: SUVOREXANT
     Indication: INSOMNIA
     Dosage: 15 MG, 1X/DAY
     Route: 048
     Dates: end: 20181212
  5. EFFEXOR [Suspect]
     Active Substance: VENLAFAXINE HYDROCHLORIDE
     Indication: DEPRESSED MOOD
     Dosage: 37.5 MG, 1X/DAY
     Route: 048
     Dates: start: 20181103, end: 20181112
  6. QUETIAPINE FUMARATE. [Suspect]
     Active Substance: QUETIAPINE FUMARATE
     Indication: INSOMNIA
     Dosage: 25 MG, 1X/DAY
     Route: 048
     Dates: start: 20181206, end: 20181212
  7. LUNESTA [Concomitant]
     Active Substance: ESZOPICLONE
     Indication: INSOMNIA
     Dosage: 1 MG, 1X/DAY
     Route: 048
     Dates: end: 20181212
  8. EFFEXOR [Suspect]
     Active Substance: VENLAFAXINE HYDROCHLORIDE
     Dosage: 75 MG, 1X/DAY
     Route: 048
     Dates: start: 20181113, end: 20181212
  9. TETRAMIDE [Suspect]
     Active Substance: MIANSERIN
     Indication: INSOMNIA
     Dosage: 10 MG, 1X/DAY
     Route: 048
     Dates: start: 20181122, end: 20181126

REACTIONS (3)
  - Pyrexia [Unknown]
  - Liver function test abnormal [Recovered/Resolved]
  - Hyperhidrosis [Unknown]

NARRATIVE: CASE EVENT DATE: 20181206
